FAERS Safety Report 8499956-X (Version None)
Quarter: 2012Q3

REPORT INFORMATION
  Report Type: 
  Country: None (occurrence: None)
  Receive Date: 20120710
  Receipt Date: 20120627
  Transmission Date: 20120928
  Serious: Yes (Other)
  Sender: FDA-Public Use
  Company Number: GB-ELI_LILLY_AND_COMPANY-GB201206003523

PATIENT
  Age: 16 Year
  Sex: Male

DRUGS (3)
  1. ZYPREXA [Suspect]
     Indication: PSYCHOTIC DISORDER
     Dosage: 15 MG, UNK
     Route: 048
     Dates: start: 20120522
  2. ZUCLOPENTHIXOL [Concomitant]
     Indication: PSYCHOTIC DISORDER
  3. ZYPREXA [Suspect]
     Dosage: UNK
     Route: 030
     Dates: end: 20120521

REACTIONS (4)
  - MYOCARDITIS [None]
  - PERICARDITIS [None]
  - BLOOD THROMBIN INCREASED [None]
  - PSYCHOTIC DISORDER [None]
